FAERS Safety Report 4832325-X (Version None)
Quarter: 2005Q4

REPORT INFORMATION
  Report Type: 
  Country: None (occurrence: None)
  Receive Date: 20051121
  Receipt Date: 20050926
  Transmission Date: 20060501
  Serious: Yes (Death)
  Sender: FDA-Public Use
  Company Number: FR-BOEHRINGER INGELHEIM PHARMACEUTICALS, INC.-2005-FF-00663FF

PATIENT
  Sex: Male
  Weight: 40 kg

DRUGS (15)
  1. TIPRANAVIR + RITONAVIR CO-ADMIN [Suspect]
     Indication: HIV INFECTION
     Route: 048
     Dates: start: 20050513, end: 20050824
  2. FUZEON [Concomitant]
     Indication: HIV INFECTION
     Dates: start: 20050513, end: 20050824
  3. TENOFOVIR [Concomitant]
     Indication: HIV INFECTION
     Route: 048
     Dates: start: 20050513, end: 20050824
  4. EPIVIR [Concomitant]
     Indication: HIV INFECTION
     Route: 048
     Dates: start: 20050513, end: 20050824
  5. CLAMOXYL [Concomitant]
  6. ZECLAR [Concomitant]
  7. MYAMBUTOL [Concomitant]
  8. ZOVIRAX [Concomitant]
  9. TRIFLUCAN [Concomitant]
  10. BACTRIM [Concomitant]
     Dosage: ONE TABLET DAILY
     Route: 048
  11. TRIATEC [Concomitant]
  12. LASILIX [Concomitant]
  13. ALDACTONE [Concomitant]
  14. DURAGESIC-100 [Concomitant]
     Route: 062
  15. INIPOMP [Concomitant]

REACTIONS (1)
  - KAPOSI'S SARCOMA [None]
